FAERS Safety Report 25603175 (Version 2)
Quarter: 2025Q3

REPORT INFORMATION
  Report Type: Spontaneous
  Country: EU (occurrence: EU)
  Receive Date: 20250724
  Receipt Date: 20250925
  Transmission Date: 20251021
  Serious: Yes (Life-Threatening)
  Sender: AMERICAN REGENT
  Company Number: EU-AMERICAN REGENT INC-2025002893

PATIENT
  Age: 82 Year
  Sex: Female
  Weight: 45.6 kg

DRUGS (1)
  1. FERINJECT [Suspect]
     Active Substance: FERRIC CARBOXYMALTOSE
     Indication: Anaemia
     Route: 042
     Dates: start: 20250627, end: 20250627

REACTIONS (1)
  - Anaphylactic reaction [Recovered/Resolved]

NARRATIVE: CASE EVENT DATE: 20250627
